FAERS Safety Report 15155683 (Version 1)
Quarter: 2018Q3

REPORT INFORMATION
  Report Type: Spontaneous
  Country: US (occurrence: US)
  Receive Date: 20180620
  Receipt Date: 20180620
  Transmission Date: 20181010
  Serious: No
  Sender: FDA-Public Use
  Company Number: None

PATIENT
  Age: 40 Year
  Sex: Female
  Weight: 105.3 kg

DRUGS (2)
  1. DULOXETINE. [Suspect]
     Active Substance: DULOXETINE
     Indication: DEPRESSION
     Dosage: ?          QUANTITY:1 CAPSULE(S);?
     Route: 048
     Dates: start: 20170801, end: 20180612
  2. WELLBUTRIN [Concomitant]
     Active Substance: BUPROPION HYDROCHLORIDE

REACTIONS (17)
  - Headache [None]
  - Disturbance in attention [None]
  - Memory impairment [None]
  - Asthenia [None]
  - Crying [None]
  - Vertigo [None]
  - Dizziness [None]
  - Dissociation [None]
  - Feeling abnormal [None]
  - Aggression [None]
  - Withdrawal syndrome [None]
  - Paraesthesia [None]
  - Pain [None]
  - Suicide attempt [None]
  - Hyperhidrosis [None]
  - Aphasia [None]
  - Anger [None]

NARRATIVE: CASE EVENT DATE: 20180614
